FAERS Safety Report 8644606 (Version 3)
Quarter: 2012Q4

REPORT INFORMATION
  Report Type: 
  Country: US (occurrence: US)
  Receive Date: 20120629
  Receipt Date: 20120906
  Transmission Date: 20130627
  Serious: No
  Sender: FDA-Public Use
  Company Number: US-ASTRAZENECA-2012SE41269

PATIENT
  Age: 51 Year
  Sex: Female

DRUGS (16)
  1. ATACAND [Suspect]
     Route: 048
  2. ATACAND [Suspect]
     Route: 048
  3. ATACAND HCT [Suspect]
     Dosage: 32 MG-25 MG, ONE TABLET DAILY
     Route: 048
  4. ZOMIG [Concomitant]
  5. LEVOTHYROXINE SODIUM [Concomitant]
  6. SKELAXIN [Concomitant]
  7. ZOLPIDEM TARTRATE [Concomitant]
  8. LORCET [Concomitant]
  9. PROMETHAZINE HYDROCHLORIDE [Concomitant]
  10. PREMARIN [Concomitant]
  11. NEXIUM [Concomitant]
  12. TRICOR [Concomitant]
  13. KAON-CL [Concomitant]
  14. LORAZEPAM [Concomitant]
  15. HYDROCHLOROTHIAZIDE [Concomitant]
  16. AMITRIPTYLINE HYDROCHLORIDEE [Concomitant]

REACTIONS (26)
  - Dehydration [Unknown]
  - Presyncope [Unknown]
  - Blood pressure decreased [Unknown]
  - Tongue dry [Unknown]
  - Lip dry [Recovered/Resolved]
  - Blood pressure increased [Unknown]
  - Nausea [Unknown]
  - Fatigue [Unknown]
  - Tachycardia [Unknown]
  - Hypoaesthesia [Unknown]
  - Dyspnoea [Unknown]
  - Paraesthesia [Unknown]
  - Fibromyalgia [Unknown]
  - Hypertriglyceridaemia [Unknown]
  - Depression [Unknown]
  - Anxiety [Unknown]
  - Vitamin B12 deficiency [Unknown]
  - Sjogren^s syndrome [Unknown]
  - Gastrooesophageal reflux disease [Unknown]
  - Headache [Unknown]
  - Chest discomfort [Unknown]
  - Pain [Unknown]
  - Sleep disorder [Unknown]
  - Adverse drug reaction [Unknown]
  - Dizziness [Unknown]
  - Cardiac disorder [None]
